FAERS Safety Report 8310471-6 (Version None)
Quarter: 2012Q2

REPORT INFORMATION
  Report Type: 
  Country: None (occurrence: None)
  Receive Date: 20120425
  Receipt Date: 20120412
  Transmission Date: 20120825
  Serious: Yes (Death, Other)
  Sender: FDA-Public Use
  Company Number: DE-CELGENEUS-062-50794-10080606

PATIENT

DRUGS (3)
  1. VIDAZA [Suspect]
     Dosage: 100 MILLIGRAM/SQ. METER
     Route: 050
  2. IMMUNE CELLS HUMAN [Suspect]
     Dosage: 1-5X10EXP6 - 1-5X10EXP8 CELL/KG
     Route: 065
  3. RED BLOOD CELLS, CONCENTRATED [Concomitant]
     Route: 041

REACTIONS (14)
  - NEUTROPENIA [None]
  - GASTROINTESTINAL DISORDER [None]
  - CHRONIC GRAFT VERSUS HOST DISEASE [None]
  - DISEASE PROGRESSION [None]
  - INFECTION [None]
  - NO THERAPEUTIC RESPONSE [None]
  - HAEMATOTOXICITY [None]
  - ANAEMIA [None]
  - ACUTE GRAFT VERSUS HOST DISEASE [None]
  - SKIN REACTION [None]
  - GRAFT VERSUS HOST DISEASE [None]
  - C-REACTIVE PROTEIN INCREASED [None]
  - HAEMORRHAGE [None]
  - THROMBOCYTOPENIA [None]
